FAERS Safety Report 14895126 (Version 1)
Quarter: 2018Q2

REPORT INFORMATION
  Report Type: Spontaneous
  Country: FR (occurrence: FR)
  Receive Date: 20180515
  Receipt Date: 20180515
  Transmission Date: 20180711
  Serious: Yes (Other)
  Sender: FDA-Public Use
  Company Number: FR-MERCK KGAA-2047733

PATIENT
  Age: 53 Year
  Sex: Female

DRUGS (2)
  1. ELIQUIS [Concomitant]
     Active Substance: APIXABAN
  2. NOVOTHYROX [Suspect]
     Active Substance: LEVOTHYROXINE SODIUM
     Indication: GOITRE

REACTIONS (18)
  - Headache [None]
  - Pain [None]
  - Angina pectoris [None]
  - Alopecia [None]
  - Social avoidant behaviour [None]
  - Fatigue [None]
  - Asthenia [None]
  - Palpitations [None]
  - Myalgia [None]
  - Weight increased [None]
  - Arthralgia [None]
  - Muscle spasms [None]
  - Depression [None]
  - Dizziness [None]
  - Negative thoughts [None]
  - Hyperthyroidism [None]
  - Chest discomfort [None]
  - Insomnia [None]

NARRATIVE: CASE EVENT DATE: 201704
